FAERS Safety Report 8933197 (Version 1)
Quarter: 2012Q4

REPORT INFORMATION
  Report Type: 
  Country: GT (occurrence: GT)
  Receive Date: 20121129
  Receipt Date: 20121129
  Transmission Date: 20130627
  Serious: Yes (Death, Hospitalization)
  Sender: FDA-Public Use
  Company Number: PHHY2012GT108350

PATIENT
  Age: 34 Year
  Sex: Male

DRUGS (4)
  1. GLIVEC [Suspect]
     Indication: CHRONIC MYELOID LEUKAEMIA
     Dosage: UNK UKN, UNK
  2. GLIVEC [Suspect]
     Dosage: 400 mg, QD
     Route: 048
     Dates: start: 20121028, end: 20121120
  3. CEFEPIME [Concomitant]
     Indication: FEBRILE NEUTROPENIA
     Dosage: 2 gr TID
     Route: 042
  4. AMPHOTERICIN-B [Concomitant]
     Indication: OESOPHAGEAL CANDIDIASIS
     Dosage: 30 mg, QD
     Route: 042

REACTIONS (4)
  - Blast crisis in myelogenous leukaemia [Fatal]
  - Disease progression [Fatal]
  - Oesophageal candidiasis [Fatal]
  - Febrile neutropenia [Fatal]
